FAERS Safety Report 4456181-7 (Version None)
Quarter: 2004Q3

REPORT INFORMATION
  Report Type: 
  Country: None (occurrence: None)
  Receive Date: 20040920
  Receipt Date: 20040906
  Transmission Date: 20050211
  Serious: Yes (Hospitalization)
  Sender: FDA-Public Use
  Company Number: 04P-056-0272648-00

PATIENT
  Age: 85 Year
  Sex: Female

DRUGS (14)
  1. BIAXIN [Suspect]
     Dosage: 1 DOSAGE FORMS, 4 IN 1 D, ORAL
     Route: 048
     Dates: start: 20040731, end: 20040802
  2. INIPOMP (PANTOPRAZOLE) (PANTOPRAZOLE) (PANTOPRAZOLE) [Suspect]
     Dosage: 20 MG, 1 IN 1 D, ORAL
     Route: 048
     Dates: start: 20040731, end: 20040802
  3. CANDESARTAN CILEXETIL [Suspect]
     Indication: ESSENTIAL HYPERTENSION
     Dosage: DOSAGE FORMS, ORAL
     Route: 048
     Dates: end: 20040729
  4. LEVOTHYROXINE SODIUM [Suspect]
     Indication: HYPERTHYROIDISM
     Dosage: 75 MCG, 4 IN 1 WK, ORAL
     Route: 048
  5. FLECAINIDE ACETATE [Suspect]
     Indication: ARRHYTHMIA
     Dosage: 50 MG, 2 IN 1 D, ORAL
     Route: 048
     Dates: start: 20040709
  6. SOTALOL HCL [Suspect]
     Dosage: 0.5 DOSAGE FORMS, ORAL
     Route: 048
     Dates: start: 20040709
  7. CIBACALCINE [Suspect]
     Dosage: 30 MG, 1 IN 1 D
     Dates: start: 20040727, end: 20040802
  8. URAPIDIL [Suspect]
     Dosage: 30 MG, 2 IN 1 D, ORAL
     Route: 048
     Dates: start: 20040729, end: 20040802
  9. LOPERAMIDE HCL [Suspect]
     Dosage: DOSAGE FORMS, ORAL
     Route: 048
     Dates: start: 20040729, end: 20040802
  10. CANDESARTAN CILEXETIL HYDROXCHLOROTHYAZIDE [Suspect]
     Indication: ESSENTIAL HYPERTENSION
     Dosage: 8 MG, 1 IN 1 D, ORAL
     Route: 048
     Dates: start: 20040729, end: 20040802
  11. TETRAZEPAM [Suspect]
     Dosage: 50 MG, 1 IN 1 D, ORAL
     Route: 048
     Dates: start: 20040731, end: 20040802
  12. AMLODIPINE BESYLATE [Suspect]
     Indication: ESSENTIAL HYPERTENSION
     Dosage: 5 MG, 1 IN 1 D, ORAL
     Route: 048
     Dates: start: 20040731, end: 20040802
  13. PARACETAMOL [Suspect]
     Dosage: DOSAGE FORMS, ORAL
     Route: 048
     Dates: start: 20040731, end: 20040802
  14. PREDNISOLONE SODIUM PHOSPHATE [Suspect]
     Dosage: 20 MG, 2 IN 1 D, ORAL
     Route: 048
     Dates: start: 20040731, end: 20040806

REACTIONS (3)
  - DEPRESSED LEVEL OF CONSCIOUSNESS [None]
  - ESSENTIAL HYPERTENSION [None]
  - HYPONATRAEMIA [None]
